FAERS Safety Report 10099926 (Version 1)
Quarter: 2014Q2

REPORT INFORMATION
  Report Type: Spontaneous
  Country: US (occurrence: None)
  Receive Date: 20140422
  Receipt Date: 20140422
  Transmission Date: 20141212
  Serious: No
  Sender: FDA-Public Use
  Company Number: None

PATIENT
  Age: 35 Year
  Sex: Female
  Weight: 56.7 kg

DRUGS (1)
  1. LEXAPRO [Suspect]
     Indication: ANXIETY
     Dosage: 10MG AT BEDTIME TAKEN BY MOUTH
     Route: 048

REACTIONS (6)
  - Drug withdrawal syndrome [None]
  - Wrong technique in drug usage process [None]
  - Dizziness [None]
  - Nausea [None]
  - Tremor [None]
  - Impaired work ability [None]
